FAERS Safety Report 6972858-3 (Version None)
Quarter: 2010Q3

REPORT INFORMATION
  Report Type: 
  Country: None (occurrence: None)
  Receive Date: 20100909
  Receipt Date: 20100906
  Transmission Date: 20110219
  Serious: Yes (Death)
  Sender: FDA-Public Use
  Company Number: PHHY2010AR59042

PATIENT
  Sex: Female

DRUGS (1)
  1. DIOVAN [Suspect]
     Indication: RENAL FAILURE
     Dosage: 320 MG, ONE TABLET, DAILY
     Dates: start: 20100701

REACTIONS (1)
  - DEATH [None]
